FAERS Safety Report 5866873-0 (Version None)
Quarter: 2008Q3

REPORT INFORMATION
  Report Type: 
  Country: None (occurrence: None)
  Receive Date: 20080902
  Receipt Date: 20080902
  Transmission Date: 20090109
  Serious: Yes (Death)
  Sender: FDA-Public Use
  Company Number: 348058

PATIENT
  Age: 80 Year
  Sex: Male
  Weight: 67 kg

DRUGS (14)
  1. HEPARIN [Suspect]
     Indication: HAEMODIALYSIS
     Dosage: IV
     Route: 042
     Dates: start: 20080130, end: 20080206
  2. HEPARIN [Suspect]
     Indication: THROMBOSIS PROPHYLAXIS
     Dosage: 1-3 TIMES DAILY SQ
     Route: 058
     Dates: start: 20080131, end: 20080206
  3. PIPERACILLIN AND TAZOBACTAM [Concomitant]
  4. REGLAN [Concomitant]
  5. ATIVAN [Concomitant]
  6. FENTANYL - SUBLIMA [Concomitant]
  7. LEVOPHED [Concomitant]
  8. HYDROCORTISONE SODIUM SCCINATE - SOLU-CORTEF [Concomitant]
  9. ASPIRIN [Concomitant]
  10. HEPARIN [Concomitant]
  11. TRYPSIN-BALSAM-CASTER OIL OINTMENT [Concomitant]
  12. PEPCID [Concomitant]
  13. LEVOTHYROXINE SODIUM [Concomitant]
  14. VERSED [Concomitant]

REACTIONS (7)
  - CARDIO-RESPIRATORY ARREST [None]
  - DRUG HYPERSENSITIVITY [None]
  - HAEMODIALYSIS [None]
  - NO THERAPEUTIC RESPONSE [None]
  - PHARMACEUTICAL PRODUCT COMPLAINT [None]
  - THERAPEUTIC PRODUCT CONTAMINATION [None]
  - TREATMENT NONCOMPLIANCE [None]
